FAERS Safety Report 21036179 (Version 2)
Quarter: 2022Q3

REPORT INFORMATION
  Report Type: Spontaneous
  Country: US (occurrence: US)
  Receive Date: 20220701
  Receipt Date: 20220711
  Transmission Date: 20221027
  Serious: No
  Sender: FDA-Public Use
  Company Number: US-BAUSCH-BL-2022-016800

PATIENT
  Sex: Male

DRUGS (17)
  1. LORAZEPAM [Suspect]
     Active Substance: LORAZEPAM
     Indication: Catatonia
     Route: 065
  2. LORAZEPAM [Suspect]
     Active Substance: LORAZEPAM
     Indication: Autism spectrum disorder
     Dosage: GRADUALLY INCREASED TO A TOTAL DOSAGE OF 18 MG
     Route: 065
  3. LORAZEPAM [Suspect]
     Active Substance: LORAZEPAM
     Dosage: GRADUALLY REDUCE THE DOSAGE OF LORAZEPAM BY 0.5 MG EACH MONTH
     Route: 065
  4. LORAZEPAM [Suspect]
     Active Substance: LORAZEPAM
     Route: 065
  5. LORAZEPAM [Suspect]
     Active Substance: LORAZEPAM
     Route: 065
  6. ARIPIPRAZOLE [Concomitant]
     Active Substance: ARIPIPRAZOLE
     Indication: Autism spectrum disorder
     Route: 065
  7. QUETIAPINE [Concomitant]
     Active Substance: QUETIAPINE
     Indication: Autism spectrum disorder
     Route: 065
  8. LITHIUM [Concomitant]
     Active Substance: LITHIUM
     Indication: Autism spectrum disorder
     Route: 065
  9. RISPERIDONE [Concomitant]
     Active Substance: RISPERIDONE
     Indication: Autism spectrum disorder
     Route: 065
  10. CLOBAZAM [Concomitant]
     Active Substance: CLOBAZAM
     Indication: Autism spectrum disorder
     Route: 065
  11. ACETYLCYSTEINE [Concomitant]
     Active Substance: ACETYLCYSTEINE
     Indication: Autism spectrum disorder
     Route: 065
  12. OXCARBAZEPINE [Concomitant]
     Active Substance: OXCARBAZEPINE
     Indication: Autism spectrum disorder
     Route: 065
  13. DEFLAZACORT [Concomitant]
     Active Substance: DEFLAZACORT
     Indication: Autism spectrum disorder
     Route: 065
  14. MEMANTINE [Concomitant]
     Active Substance: MEMANTINE
     Indication: Autism spectrum disorder
     Route: 065
  15. MEMANTINE [Concomitant]
     Active Substance: MEMANTINE
     Indication: Autism spectrum disorder
  16. ZOLPIDEM [Concomitant]
     Active Substance: ZOLPIDEM TARTRATE
     Indication: Catatonia
     Route: 065
  17. ZOLPIDEM [Concomitant]
     Active Substance: ZOLPIDEM TARTRATE
     Indication: Autism spectrum disorder

REACTIONS (2)
  - Catatonia [Recovered/Resolved]
  - Disease recurrence [Recovered/Resolved]
